FAERS Safety Report 5056320-3 (Version None)
Quarter: 2006Q3

REPORT INFORMATION
  Report Type: 
  Country: None (occurrence: None)
  Receive Date: 20060720
  Receipt Date: 20060710
  Transmission Date: 20061208
  Serious: Yes (Hospitalization)
  Sender: FDA-Public Use
  Company Number: PHBS2006IT10442

PATIENT
  Age: 74 Year
  Sex: Male

DRUGS (2)
  1. ZOMETA [Suspect]
     Indication: METASTASES TO BONE
     Dosage: 4 MG, EVERY 1 MONTH
     Route: 042
     Dates: start: 20030401, end: 20050401
  2. ENANTONE [Concomitant]
     Route: 065

REACTIONS (2)
  - ORAL SURGERY [None]
  - OSTEOMYELITIS [None]
